FAERS Safety Report 26210123 (Version 1)
Quarter: 2025Q4

REPORT INFORMATION
  Report Type: Spontaneous
  Country: GB (occurrence: GB)
  Receive Date: 20251229
  Receipt Date: 20251229
  Transmission Date: 20260117
  Serious: Yes (Other)
  Sender: B. BRAUN MEDICAL INC.
  Company Number: None

PATIENT
  Age: 39 Year
  Sex: Female
  Weight: 180 kg

DRUGS (1)
  1. METRONIDAZOLE [Suspect]
     Active Substance: METRONIDAZOLE
     Indication: Tooth infection
     Dosage: 500MG

REACTIONS (4)
  - Abdominal pain upper [Recovering/Resolving]
  - Pain in jaw [Recovering/Resolving]
  - Fatigue [Recovering/Resolving]
  - Dry eye [Recovering/Resolving]
